FAERS Safety Report 19072816 (Version 1)
Quarter: 2021Q1

REPORT INFORMATION
  Report Type: Spontaneous
  Country: US (occurrence: US)
  Receive Date: 20210330
  Receipt Date: 20210330
  Transmission Date: 20210420
  Serious: No
  Sender: FDA-Public Use
  Company Number: None

PATIENT
  Age: 76 Year
  Sex: Male

DRUGS (1)
  1. GEMCITABINE(GEMCITABINE HCL 2MG/VIL INJ) [Suspect]
     Active Substance: GEMCITABINE HYDROCHLORIDE
     Dates: start: 20201113, end: 20201123

REACTIONS (2)
  - Pyrexia [None]
  - Rash [None]

NARRATIVE: CASE EVENT DATE: 20201123
